FAERS Safety Report 9889663 (Version 1)
Quarter: 2014Q1

REPORT INFORMATION
  Report Type: Spontaneous
  Country: US (occurrence: US)
  Receive Date: 20140211
  Receipt Date: 20140211
  Transmission Date: 20141002
  Serious: Yes (Other)
  Sender: FDA-Public Use
  Company Number: US-PFIZER INC-2014036969

PATIENT
  Age: 62 Year
  Sex: Female

DRUGS (15)
  1. XELJANZ [Suspect]
     Indication: RHEUMATOID ARTHRITIS
     Dosage: 5 MG, 2X/DAY
     Route: 048
     Dates: start: 201307, end: 20140119
  2. XELJANZ [Suspect]
     Dosage: 5 MG, 2X/DAY
     Route: 048
     Dates: start: 20140206
  3. ALBUTEROL PRO AIR [Concomitant]
     Dosage: UNK
  4. ATENOLOL [Concomitant]
     Dosage: UNK
  5. LIPITOR [Concomitant]
     Dosage: UNK
  6. EXCEDRIN [Concomitant]
     Dosage: UNK
  7. ADVIL [Concomitant]
     Dosage: UNK
  8. LASIX [Concomitant]
     Dosage: UNK
  9. NOVOLOG [Concomitant]
     Dosage: UNK
  10. LANTUS [Concomitant]
     Dosage: UNK
  11. FISH OIL [Concomitant]
     Dosage: UNK
  12. SPIRONOLACTONE [Concomitant]
     Dosage: UNK
  13. VITAMIN D [Concomitant]
     Dosage: UNK
  14. FLEXERIL [Concomitant]
     Dosage: UNK
  15. TOBRAMYCIN [Concomitant]
     Dosage: UNK

REACTIONS (2)
  - Haematochezia [Unknown]
  - Rheumatoid arthritis [Recovered/Resolved]
